FAERS Safety Report 4806535-1 (Version None)
Quarter: 2005Q4

REPORT INFORMATION
  Report Type: 
  Country: None (occurrence: None)
  Receive Date: 20051021
  Receipt Date: 20051017
  Transmission Date: 20060501
  Serious: Yes (Death)
  Sender: FDA-Public Use
  Company Number: 2005UW15634

PATIENT
  Age: 50 Year
  Sex: Female

DRUGS (6)
  1. TOPROL-XL [Suspect]
     Route: 048
  2. CRESTOR [Suspect]
     Route: 048
  3. NEUROTON [Concomitant]
  4. DIOVAN [Concomitant]
     Dosage: 160/12.5 TWO PO QD
     Route: 048
  5. AMBIEN [Concomitant]
  6. NICIRIL [Concomitant]
     Route: 061

REACTIONS (1)
  - DEATH [None]
